FAERS Safety Report 16239838 (Version 1)
Quarter: 2019Q2

REPORT INFORMATION
  Report Type: Spontaneous
  Country: JP (occurrence: JP)
  Receive Date: 20190425
  Receipt Date: 20190425
  Transmission Date: 20190711
  Serious: Yes (Other)
  Sender: FDA-Public Use
  Company Number: JP-JNJFOC-20190431145

PATIENT

DRUGS (2)
  1. DARZALEX [Suspect]
     Active Substance: DARATUMUMAB
     Indication: PRODUCT USED FOR UNKNOWN INDICATION
     Route: 041
  2. VELCADE [Suspect]
     Active Substance: BORTEZOMIB
     Indication: PRODUCT USED FOR UNKNOWN INDICATION
     Route: 065

REACTIONS (13)
  - Pneumonia [Unknown]
  - Full blood count decreased [Unknown]
  - Viral upper respiratory tract infection [Unknown]
  - Neutropenia [Unknown]
  - Cerebral infarction [Unknown]
  - Blood pressure increased [Unknown]
  - Oxygen saturation decreased [Unknown]
  - Gastrointestinal haemorrhage [Unknown]
  - Lung disorder [Unknown]
  - Pyrexia [Unknown]
  - Thrombocytopenia [Unknown]
  - Anaemia [Unknown]
  - Infusion related reaction [Unknown]
